FAERS Safety Report 10016872 (Version 4)
Quarter: 2014Q2

REPORT INFORMATION
  Report Type: Spontaneous
  Country: US (occurrence: US)
  Receive Date: 20140318
  Receipt Date: 20140424
  Transmission Date: 20141212
  Serious: Yes (Hospitalization, Other)
  Sender: FDA-Public Use
  Company Number: US-MERCK-1403USA004812

PATIENT
  Sex: Female

DRUGS (12)
  1. PEGINTRON [Suspect]
     Indication: HEPATITIS C
     Dosage: 0.5 ML, QW, STRENTH: 120MCG/0.5ML INJECTIONS
     Dates: start: 20130305, end: 20130603
  2. PEGINTRON [Suspect]
     Dosage: 0.5 ML, QW, STRENTH: 120MCG/0.5ML INJECTIONS
     Dates: start: 20140128
  3. PEGINTRON [Suspect]
     Dosage: 0.5 ML, QW, STRENTH: 120MCG/0.5ML INJECTIONS
     Dates: start: 20110107, end: 20111007
  4. REBETOL [Suspect]
     Indication: HEPATITIS C
     Dosage: UNK, BID
     Route: 048
     Dates: start: 20130304, end: 20130603
  5. REBETOL [Suspect]
     Dosage: 2 AM 3 AT NIGHT, QD
     Route: 048
     Dates: start: 20140128
  6. REBETOL [Suspect]
     Dosage: 7 PILLS DAILY
     Route: 048
     Dates: start: 20110107, end: 20111007
  7. VICTRELIS [Suspect]
     Indication: HEPATITIS C
     Dosage: 800 MG, TID
     Route: 048
     Dates: start: 20130304, end: 20130603
  8. SYNTHROID [Concomitant]
     Dosage: 0.075 MG DAILY
  9. ESCITALOPRAM [Concomitant]
     Dosage: 20 MG, HS, ONE AT BED TIME
  10. METHADONE HYDROCHLORIDE [Concomitant]
     Dosage: 10 MG, TID
  11. SOVALDI [Concomitant]
     Dosage: 400 MG DAILY
  12. CLONIDINE [Concomitant]
     Dosage: 0.1 MG DAILY

REACTIONS (28)
  - Renal failure [Unknown]
  - Pneumonia [Unknown]
  - Mental disorder [Unknown]
  - Transfusion [Unknown]
  - Loss of consciousness [Unknown]
  - Coma [Unknown]
  - Headache [Unknown]
  - Malaise [Unknown]
  - Vomiting [Unknown]
  - Leukopenia [Unknown]
  - Anaemia [Unknown]
  - Migraine [Unknown]
  - Skin abrasion [Unknown]
  - Respiratory disorder [Unknown]
  - Sinusitis [Unknown]
  - Fatigue [Unknown]
  - Pain in extremity [Unknown]
  - Insomnia [Unknown]
  - Incontinence [Unknown]
  - Staring [Unknown]
  - Mental status changes [Unknown]
  - Vomiting [Unknown]
  - Depression [Unknown]
  - Insomnia [Unknown]
  - Nausea [Unknown]
  - Weight decreased [Unknown]
  - Dehydration [Unknown]
  - Anaemia [Unknown]
